FAERS Safety Report 5766528-7 (Version None)
Quarter: 2008Q2

REPORT INFORMATION
  Report Type: 
  Country: None (occurrence: None)
  Receive Date: 20080612
  Receipt Date: 20080605
  Transmission Date: 20081010
  Serious: Yes (Hospitalization)
  Sender: FDA-Public Use
  Company Number: GB-ROCHE-568707

PATIENT
  Age: 46 Year
  Sex: Female

DRUGS (3)
  1. INTERFERON ALFA-2A [Suspect]
     Indication: HEPATITIS C
     Route: 058
     Dates: start: 20071220, end: 20080529
  2. PROCHLORPERAZINE [Concomitant]
     Route: 048
  3. RIBAVIRIN [Concomitant]
     Indication: HEPATITIS C
     Route: 048
     Dates: start: 20071220

REACTIONS (1)
  - BLOOD POTASSIUM DECREASED [None]
